FAERS Safety Report 8830588 (Version 3)
Quarter: 2012Q4

REPORT INFORMATION
  Report Type: 
  Country: US (occurrence: US)
  Receive Date: 20121009
  Receipt Date: 20121227
  Transmission Date: 20130627
  Serious: Yes (Hospitalization, Other)
  Sender: FDA-Public Use
  Company Number: US-BAYER-2012-104187

PATIENT
  Age: 19 Year
  Sex: Female
  Weight: 54.42 kg

DRUGS (1)
  1. YAZ [Suspect]
     Dosage: UNK
     Dates: start: 20080101, end: 200808

REACTIONS (12)
  - Cerebrovascular accident [None]
  - Haemorrhage [None]
  - Pain [None]
  - Emotional distress [None]
  - Injury [None]
  - Anhedonia [None]
  - Anxiety [None]
  - General physical health deterioration [None]
  - Pain [None]
  - Excessive eye blinking [None]
  - Dysphemia [None]
  - Transient ischaemic attack [None]
